FAERS Safety Report 23762729 (Version 1)
Quarter: 2024Q2

REPORT INFORMATION
  Report Type: Spontaneous
  Country: US (occurrence: US)
  Receive Date: 20240419
  Receipt Date: 20240419
  Transmission Date: 20240715
  Serious: Yes (Other)
  Sender: FDA-Public Use
  Company Number: US-ABBVIE-5726013

PATIENT

DRUGS (1)
  1. SYNTHROID [Suspect]
     Active Substance: LEVOTHYROXINE SODIUM
     Indication: Product used for unknown indication
     Route: 048

REACTIONS (7)
  - Loss of consciousness [Unknown]
  - Bedridden [Unknown]
  - Goitre [Unknown]
  - Tri-iodothyronine decreased [Unknown]
  - Somnolence [Unknown]
  - Thyroxine decreased [Unknown]
  - Blood pressure orthostatic decreased [Unknown]
